FAERS Safety Report 18400507 (Version 1)
Quarter: 2020Q4

REPORT INFORMATION
  Report Type: Other
  Country: JP (occurrence: JP)
  Receive Date: 20201019
  Receipt Date: 20201019
  Transmission Date: 20210114
  Serious: Yes (Death)
  Sender: FDA-Public Use
  Company Number: JP-ROCHE-2697771

PATIENT

DRUGS (3)
  1. RITUXIMAB. [Suspect]
     Active Substance: RITUXIMAB
     Indication: CASTLEMAN^S DISEASE
     Route: 065
  2. TOCILIZUMAB. [Suspect]
     Active Substance: TOCILIZUMAB
     Indication: CASTLEMAN^S DISEASE
     Route: 065
  3. CICLOSPORIN [Suspect]
     Active Substance: CYCLOSPORINE
     Indication: CASTLEMAN^S DISEASE
     Route: 065

REACTIONS (5)
  - Pneumocystis jirovecii pneumonia [Fatal]
  - Bronchopulmonary aspergillosis [Fatal]
  - Sepsis [Fatal]
  - Pulmonary mycosis [Fatal]
  - Pneumonia aspiration [Fatal]
